FAERS Safety Report 5509348-0 (Version None)
Quarter: 2007Q4

REPORT INFORMATION
  Report Type: 
  Country: None (occurrence: None)
  Receive Date: 20071107
  Receipt Date: 20071026
  Transmission Date: 20080405
  Serious: Yes (Hospitalization)
  Sender: FDA-Public Use
  Company Number: DE-PFIZER INC-2007091169

PATIENT
  Age: 71 Year
  Sex: Female

DRUGS (4)
  1. ZYVOXID TABLET [Suspect]
     Indication: MENINGITIS TUBERCULOUS
     Route: 048
     Dates: start: 20070802, end: 20071025
  2. MOXIFLOXACIN HCL [Concomitant]
  3. ETHAMBUTOL HYDROCHLORIDE [Concomitant]
  4. STREPTOMYCIN [Concomitant]

REACTIONS (3)
  - ANAEMIA [None]
  - LACTIC ACIDOSIS [None]
  - RENAL FAILURE [None]
